FAERS Safety Report 7586411-4 (Version None)
Quarter: 2011Q3

REPORT INFORMATION
  Report Type: 
  Country: None (occurrence: None)
  Receive Date: 20110701
  Receipt Date: 20110623
  Transmission Date: 20111222
  Serious: Yes (Hospitalization)
  Sender: FDA-Public Use
  Company Number: B0672100A

PATIENT
  Age: 32 Year
  Sex: Female
  Weight: 88 kg

DRUGS (4)
  1. ZOMETA [Concomitant]
     Route: 042
     Dates: end: 20091205
  2. TYKERB [Suspect]
     Indication: BREAST CANCER
     Dosage: 1250MG PER DAY
     Route: 048
     Dates: start: 20090817, end: 20090917
  3. LEUPROLIDE ACETATE [Concomitant]
     Indication: BREAST CANCER
     Dosage: 3.75MG PER DAY
     Route: 058
     Dates: start: 20090818, end: 20090917
  4. XELODA [Suspect]
     Indication: BREAST CANCER
     Dosage: 2400MG PER DAY
     Route: 048
     Dates: start: 20090817, end: 20090917

REACTIONS (6)
  - PYREXIA [None]
  - HEPATIC FUNCTION ABNORMAL [None]
  - VOMITING [None]
  - METASTASES TO CENTRAL NERVOUS SYSTEM [None]
  - CONVULSION [None]
  - CHOLANGITIS [None]
